FAERS Safety Report 4589846-7 (Version None)
Quarter: 2005Q1

REPORT INFORMATION
  Report Type: 
  Country: None (occurrence: None)
  Receive Date: 20050223
  Receipt Date: 19981207
  Transmission Date: 20050727
  Serious: Yes (Other)
  Sender: FDA-Public Use
  Company Number: US-ABBOTT-98P-163-0058565-00

PATIENT
  Sex: Female
  Weight: 109 kg

DRUGS (12)
  1. DEPAKOTE [Suspect]
     Indication: BIPOLAR DISORDER
     Dosage: 3 TAB BID
     Route: 048
     Dates: start: 19980101, end: 19980101
  2. DEPAKOTE [Suspect]
     Dosage: 2 TAB BID
     Route: 048
     Dates: start: 19980101, end: 20050126
  3. DEPAKOTE [Suspect]
     Dosage: 3 TAB BID
     Route: 048
     Dates: start: 20050126, end: 20050211
  4. DEPAKOTE [Suspect]
     Dosage: 2 TAB BID
     Route: 048
     Dates: start: 20050211
  5. ZYPREXA [Concomitant]
     Indication: PSYCHOTIC DISORDER
     Route: 048
     Dates: start: 19960901, end: 20050101
  6. ESTRADIOL [Concomitant]
  7. LASIX [Concomitant]
  8. ATORVASTATIN [Concomitant]
     Indication: DRUG USE FOR UNKNOWN INDICATION
     Route: 048
     Dates: start: 19990101
  9. HALDOL [Concomitant]
     Indication: PSYCHOTIC DISORDER
     Route: 048
     Dates: start: 20000101
  10. ASPIRIN [Concomitant]
     Indication: CARDIAC DISORDER
     Route: 048
     Dates: start: 19980101
  11. TOCOPHEROL CONCENTRATE CAP [Concomitant]
     Indication: DRUG USE FOR UNKNOWN INDICATION
     Route: 048
  12. GLIBENCLAMIDE [Concomitant]
     Indication: DIABETES MELLITUS
     Route: 048
     Dates: start: 20041101

REACTIONS (3)
  - ANGINA PECTORIS [None]
  - CORONARY ARTERY OCCLUSION [None]
  - OEDEMA PERIPHERAL [None]
